FAERS Safety Report 16294922 (Version 1)
Quarter: 2019Q2

REPORT INFORMATION
  Report Type: Spontaneous
  Country: US (occurrence: US)
  Receive Date: 20190509
  Receipt Date: 20190509
  Transmission Date: 20190711
  Serious: No
  Sender: FDA-Public Use
  Company Number: US-ROCHE-2176622

PATIENT
  Sex: Male

DRUGS (4)
  1. ESBRIET [Suspect]
     Active Substance: PIRFENIDONE
     Indication: IDIOPATHIC PULMONARY FIBROSIS
     Dosage: 1 TAB BY MOUTH 3 TIMES A DAY WITH MEALS
     Route: 048
     Dates: start: 20180718
  2. BENZONATATE. [Concomitant]
     Active Substance: BENZONATATE
     Route: 065
  3. COUMADIN [Concomitant]
     Active Substance: WARFARIN SODIUM
     Route: 065
  4. RIZATRIPTAN. [Concomitant]
     Active Substance: RIZATRIPTAN
     Route: 065

REACTIONS (3)
  - Somnolence [Not Recovered/Not Resolved]
  - Dyspnoea [Not Recovered/Not Resolved]
  - Fatigue [Not Recovered/Not Resolved]
